FAERS Safety Report 11444328 (Version 1)
Quarter: 2015Q3

REPORT INFORMATION
  Report Type: Spontaneous
  Country: US (occurrence: US)
  Receive Date: 20150902
  Receipt Date: 20150902
  Transmission Date: 20151125
  Serious: Yes (Life-Threatening)
  Sender: FDA-Public Use
  Company Number: US-HOSPIRA-2986852

PATIENT

DRUGS (2)
  1. DEXMEDETOMIDINE HYDROCHLORIDE. [Suspect]
     Active Substance: DEXMEDETOMIDINE HYDROCHLORIDE
     Indication: SEDATIVE THERAPY
     Dosage: LOADING DOSE OVER 10 MINUTES
     Route: 042
  2. DEXMEDETOMIDINE HYDROCHLORIDE. [Suspect]
     Active Substance: DEXMEDETOMIDINE HYDROCHLORIDE
     Indication: SEDATIVE THERAPY
     Dosage: 0.4 MCG/KG/HR
     Route: 041

REACTIONS (3)
  - Drug administered to patient of inappropriate age [Unknown]
  - Supraventricular extrasystoles [Unknown]
  - Neonatal hypotension [Unknown]
